FAERS Safety Report 25791154 (Version 1)
Quarter: 2025Q3

REPORT INFORMATION
  Report Type: Spontaneous
  Country: GB (occurrence: GB)
  Receive Date: 20250911
  Receipt Date: 20250911
  Transmission Date: 20251021
  Serious: Yes (Other)
  Sender: Unknown Manufacturer
  Company Number: GB-MIRUM PHARMACEUTICALS, INC.-GB-MIR-25-00621

PATIENT

DRUGS (6)
  1. MARALIXIBAT [Suspect]
     Active Substance: MARALIXIBAT
     Indication: Pruritus
     Dosage: 1.25 MILLILITER, QD (200UG/ML)
     Route: 065
     Dates: start: 202305
  2. MARALIXIBAT [Suspect]
     Active Substance: MARALIXIBAT
     Dosage: 2.5 MILLILITER, QD (TITRATED)
     Route: 065
  3. MARALIXIBAT [Suspect]
     Active Substance: MARALIXIBAT
     Dosage: 1.75 MILLILITER, QD (DOSE REDUCED)
     Route: 065
  4. MARALIXIBAT [Suspect]
     Active Substance: MARALIXIBAT
     Dosage: 2.5 MILLILITER, QD
     Route: 065
     Dates: start: 202402, end: 202405
  5. MYCOPHENOLATE MOFETIL [Concomitant]
     Active Substance: MYCOPHENOLATE MOFETIL
     Indication: Immunosuppression
     Dosage: 500 MILLIGRAM, BID
     Route: 065
  6. TACROLIMUS [Concomitant]
     Active Substance: TACROLIMUS
     Indication: Immunosuppression
     Route: 065

REACTIONS (4)
  - Liver transplant [Unknown]
  - Cold sweat [Unknown]
  - Tremor [Unknown]
  - Pruritus [Recovered/Resolved]

NARRATIVE: CASE EVENT DATE: 20240201
